FAERS Safety Report 18013706 (Version 4)
Quarter: 2021Q4

REPORT INFORMATION
  Report Type: Report from Study
  Country: US (occurrence: US)
  Receive Date: 20200713
  Receipt Date: 20211026
  Transmission Date: 20220303
  Serious: Yes (Other)
  Sender: FDA-Public Use
  Company Number: US-NOVARTISPH-NVSC2020US192928

PATIENT
  Age: 45 Year
  Sex: Female

DRUGS (2)
  1. MAYZENT [Suspect]
     Active Substance: SIPONIMOD
     Indication: Multiple sclerosis
     Dosage: 2 MG, QD
     Route: 048
     Dates: start: 202002
  2. SERTRALINE HYDROCHLORIDE [Concomitant]
     Active Substance: SERTRALINE HYDROCHLORIDE
     Indication: Anxiety
     Dosage: 50 MG, QD
     Route: 048

REACTIONS (3)
  - Ankle fracture [Recovered/Resolved]
  - Fall [Recovering/Resolving]
  - Joint swelling [Recovering/Resolving]

NARRATIVE: CASE EVENT DATE: 20200301
